FAERS Safety Report 6871899-4 (Version None)
Quarter: 2010Q2

REPORT INFORMATION
  Report Type: 
  Country: None (occurrence: None)
  Receive Date: 20100528
  Receipt Date: 20100419
  Transmission Date: 20101027
  Serious: Yes (Other)
  Sender: FDA-Public Use
  Company Number: 2010032756

PATIENT
  Age: 65 Year
  Sex: Male

DRUGS (1)
  1. TOVIAZ (FESOTERODINE) MODIFIED-RELEASE TABLET [Suspect]
     Indication: HYPERTONIC BLADDER
     Dosage: 4 MG, 1X/DAY, ORAL
     Route: 048
     Dates: start: 20100101, end: 20100101

REACTIONS (1)
  - URINARY RETENTION [None]
